FAERS Safety Report 7283472-7 (Version None)
Quarter: 2011Q1

REPORT INFORMATION
  Report Type: 
  Country: None (occurrence: None)
  Receive Date: 20110209
  Receipt Date: 20110126
  Transmission Date: 20110831
  Serious: Yes (Hospitalization)
  Sender: FDA-Public Use
  Company Number: PHHY2011DE03780

PATIENT

DRUGS (7)
  1. METOHEXAL [Concomitant]
     Indication: BLOOD PRESSURE INCREASED
     Dosage: UNK
     Dates: end: 20100501
  2. ZOLPIDEM [Concomitant]
     Indication: SLEEP DISORDER
     Dosage: 10 MG, IN THE EVENING
  3. PROVAS [Suspect]
     Dosage: 1 DF, QD, IN THE MORNING
     Dates: start: 20100501
  4. BETA BLOCKING AGENTS [Concomitant]
     Indication: BLOOD PRESSURE INCREASED
     Dosage: 1 DF, BID, 1 IN THE MORNING AND 1 IN THE EVENING
     Dates: end: 20100501
  5. PROVAS COMP [Suspect]
     Indication: HYPERTENSION
     Dosage: UNK
     Dates: start: 19900101, end: 20100501
  6. PROVAS [Suspect]
     Dosage: UNK
     Dates: start: 20100501
  7. PROVAS [Suspect]
     Dosage: QUARTER DF
     Dates: start: 20110107

REACTIONS (9)
  - HEADACHE [None]
  - ROAD TRAFFIC ACCIDENT [None]
  - EXTRASYSTOLES [None]
  - ARRHYTHMIA [None]
  - GALLOP RHYTHM PRESENT [None]
  - PALPITATIONS [None]
  - FACIAL BONES FRACTURE [None]
  - HEART RATE DECREASED [None]
  - FEAR [None]
